FAERS Safety Report 19181118 (Version 8)
Quarter: 2022Q2

REPORT INFORMATION
  Report Type: Report from Study
  Country: AU (occurrence: None)
  Receive Date: 20210426
  Receipt Date: 20220407
  Transmission Date: 20220720
  Serious: Yes (Hospitalization)
  Sender: FDA-Public Use
  Company Number: AU-EISAI MEDICAL RESEARCH-EC-2021-091695

PATIENT
  Age: 72 Year
  Sex: Female
  Weight: 61.9 kg

DRUGS (9)
  1. ARICEPT [Suspect]
     Active Substance: DONEPEZIL HYDROCHLORIDE
     Indication: Dementia Alzheimer^s type
     Route: 048
     Dates: start: 20190515, end: 20210227
  2. ARICEPT [Suspect]
     Active Substance: DONEPEZIL HYDROCHLORIDE
     Route: 048
     Dates: start: 20210310, end: 20210323
  3. B2401 [Concomitant]
     Indication: Dementia Alzheimer^s type
     Route: 042
     Dates: start: 20210119
  4. SERTRALINE [Concomitant]
     Active Substance: SERTRALINE HYDROCHLORIDE
  5. NEXIUM [Concomitant]
     Active Substance: ESOMEPRAZOLE MAGNESIUM
  6. MOTILIUM [Concomitant]
     Active Substance: DOMPERIDONE
  7. VAGIFEM [Concomitant]
     Active Substance: ESTRADIOL
  8. CALTRATE [Concomitant]
     Active Substance: CALCIUM CARBONATE
  9. MELOXICAM [Concomitant]
     Active Substance: MELOXICAM

REACTIONS (4)
  - Gastrooesophageal reflux disease [Recovered/Resolved]
  - Non-cardiac chest pain [Recovered/Resolved]
  - Abdominal pain upper [Recovered/Resolved]
  - Nausea [Recovered/Resolved with Sequelae]

NARRATIVE: CASE EVENT DATE: 20210206
